FAERS Safety Report 5379735-2 (Version None)
Quarter: 2007Q3

REPORT INFORMATION
  Report Type: 
  Country: None (occurrence: None)
  Receive Date: 20070706
  Receipt Date: 20070629
  Transmission Date: 20080115
  Serious: Yes (Other)
  Sender: FDA-Public Use
  Company Number: PHBS2007DE10312

PATIENT
  Age: 54 Year
  Sex: Female

DRUGS (1)
  1. TERBINAFINE [Suspect]

REACTIONS (3)
  - DEPRESSION [None]
  - NIGHT SWEATS [None]
  - RESTLESSNESS [None]
